FAERS Safety Report 22332903 (Version 1)
Quarter: 2023Q2

REPORT INFORMATION
  Report Type: Spontaneous
  Country: US (occurrence: US)
  Receive Date: 20230517
  Receipt Date: 20230517
  Transmission Date: 20230721
  Serious: No
  Sender: FDA-Public Use
  Company Number: US-PFIZER INC-PV202300086172

PATIENT
  Age: 4 Year
  Sex: Male

DRUGS (1)
  1. OXBRYTA [Suspect]
     Active Substance: VOXELOTOR
     Indication: Sickle cell disease
     Dosage: 600 MG, 1X/DAY (DISSOLVE 2 TABLETS IN 10ML OF CLEAR ROOM TEMPERATURE LIQUID AND DRINK)
     Route: 048
     Dates: start: 20230502

REACTIONS (1)
  - Diarrhoea [Unknown]

NARRATIVE: CASE EVENT DATE: 20230501
